FAERS Safety Report 5150865-3 (Version None)
Quarter: 2006Q4

REPORT INFORMATION
  Report Type: 
  Country: None (occurrence: None)
  Receive Date: 20061108
  Receipt Date: 20061025
  Transmission Date: 20070319
  Serious: Yes (Other)
  Sender: FDA-Public Use
  Company Number: 2006114392

PATIENT
  Age: 70 Year
  Sex: 0

DRUGS (3)
  1. AZITHROMYCIN [Suspect]
     Dosage: ORAL
     Route: 048
  2. CEFOTIAM HYDROCHLORIDE [Suspect]
     Dosage: INTRAVENOUS
     Route: 042
  3. BISOLVON (BROMHEXINE HYDROCHLORIDE) [Suspect]
     Dosage: ORAL
     Route: 048

REACTIONS (1)
  - PULMONARY OEDEMA [None]
